FAERS Safety Report 4575916-6 (Version None)
Quarter: 2005Q1

REPORT INFORMATION
  Report Type: 
  Country: None (occurrence: None)
  Receive Date: 20050204
  Receipt Date: 20050126
  Transmission Date: 20050727
  Serious: Yes (Hospitalization)
  Sender: FDA-Public Use
  Company Number: 2005020498

PATIENT
  Sex: Female

DRUGS (1)
  1. EPANUTIN SUSPENSION (PHENYTOIN SODIUM) [Suspect]
     Indication: ILL-DEFINED DISORDER

REACTIONS (3)
  - CONVULSION [None]
  - PHARMACEUTICAL PRODUCT COMPLAINT [None]
  - VOMITING [None]
